FAERS Safety Report 21578955 (Version 9)
Quarter: 2025Q1

REPORT INFORMATION
  Report Type: Spontaneous
  Country: US (occurrence: US)
  Receive Date: 20221110
  Receipt Date: 20250127
  Transmission Date: 20250409
  Serious: Yes (Other)
  Sender: PFIZER
  Company Number: US-PFIZER INC-PV202200099857

PATIENT
  Age: 71 Year
  Sex: Male

DRUGS (1)
  1. XELJANZ XR [Suspect]
     Active Substance: TOFACITINIB CITRATE
     Dosage: 11 MG, 1X/DAY
     Route: 048

REACTIONS (7)
  - Lower limb fracture [Unknown]
  - Osteoporosis [Unknown]
  - Gait disturbance [Unknown]
  - Asthma [Unknown]
  - Malaise [Unknown]
  - Mobility decreased [Unknown]
  - Movement disorder [Unknown]
